FAERS Safety Report 7641241-X (Version None)
Quarter: 2011Q3

REPORT INFORMATION
  Report Type: 
  Country: None (occurrence: None)
  Receive Date: 20110727
  Receipt Date: 20110727
  Transmission Date: 20111222
  Serious: No
  Sender: FDA-Public Use
  Company Number: None

PATIENT
  Sex: Female
  Weight: 88.905 kg

DRUGS (1)
  1. ORTHO TRI-CYCLEN [Suspect]
     Indication: POLYCYSTIC OVARIES
     Dosage: 1 PO QD
     Route: 048
     Dates: start: 19990401

REACTIONS (1)
  - ACNE CYSTIC [None]
